FAERS Safety Report 25229742 (Version 2)
Quarter: 2025Q2

REPORT INFORMATION
  Report Type: Report from Study
  Country: US (occurrence: US)
  Receive Date: 20250423
  Receipt Date: 20250514
  Transmission Date: 20250716
  Serious: Yes (Hospitalization, Other)
  Sender: GILEAD
  Company Number: US-GILEAD-2025-0711280

PATIENT
  Age: 51 Year
  Sex: Female

DRUGS (3)
  1. AZTREONAM LYSINE [Interacting]
     Active Substance: AZTREONAM LYSINE
     Indication: Cystic fibrosis
     Dosage: INHALE (75 MG) VIA ALTERA NEBULIZER THREE TIMES DAILY FOR 28 DAYS ON AND 28 DAYS OFF
     Route: 055
  2. CYCLOSPORINE [Interacting]
     Active Substance: CYCLOSPORINE
     Indication: Product used for unknown indication
     Route: 065
  3. LETERMOVIR [Interacting]
     Active Substance: LETERMOVIR
     Indication: Product used for unknown indication
     Route: 065

REACTIONS (2)
  - Renal failure [Unknown]
  - Drug interaction [Unknown]

NARRATIVE: CASE EVENT DATE: 20250321
